FAERS Safety Report 17706448 (Version 1)
Quarter: 2020Q2

REPORT INFORMATION
  Report Type: Spontaneous
  Country: FR (occurrence: FR)
  Receive Date: 20200424
  Receipt Date: 20200424
  Transmission Date: 20200714
  Serious: Yes (Hospitalization)
  Sender: FDA-Public Use
  Company Number: NVSC2020FR110981

PATIENT
  Age: 86 Year
  Sex: Female

DRUGS (1)
  1. EXELON [Suspect]
     Active Substance: RIVASTIGMINE TARTRATE
     Indication: DEMENTIA ALZHEIMER^S TYPE
     Dosage: 9.5 MG, Q24H
     Route: 062
     Dates: end: 20200120

REACTIONS (2)
  - Sinus node dysfunction [Recovered/Resolved]
  - Bradycardia [Recovered/Resolved]
